FAERS Safety Report 7946420-X (Version None)
Quarter: 2011Q4

REPORT INFORMATION
  Report Type: 
  Country: None (occurrence: None)
  Receive Date: 20111129
  Receipt Date: 20111118
  Transmission Date: 20120403
  Serious: Yes (Hospitalization)
  Sender: FDA-Public Use
  Company Number: US-BAYER-201033445NA

PATIENT
  Age: 21 Year
  Sex: Female
  Weight: 63.039 kg

DRUGS (2)
  1. YASMIN [Suspect]
     Indication: ORAL CONTRACEPTION
     Dosage: UNK UNK, UNK
     Route: 048
     Dates: start: 20020101, end: 20090101
  2. DROSPIRENONE AND ETHINYL ESTRADIOL [Suspect]
     Dosage: UNK
     Dates: start: 20020101, end: 20090101

REACTIONS (10)
  - GASTROOESOPHAGEAL REFLUX DISEASE [None]
  - DEPRESSION [None]
  - ANXIETY [None]
  - CHOLELITHIASIS [None]
  - DYSPEPSIA [None]
  - FLATULENCE [None]
  - ABDOMINAL DISTENSION [None]
  - BOWEL MOVEMENT IRREGULARITY [None]
  - ACNE [None]
  - SCAR [None]
